FAERS Safety Report 6999379-6 (Version None)
Quarter: 2010Q3

REPORT INFORMATION
  Report Type: 
  Country: None (occurrence: None)
  Receive Date: 20100920
  Receipt Date: 20100706
  Transmission Date: 20110219
  Serious: No
  Sender: FDA-Public Use
  Company Number: US-ASTRAZENECA-2010SE31408

PATIENT
  Age: 52 Year
  Sex: Male
  Weight: 104.3 kg

DRUGS (8)
  1. SEROQUEL [Suspect]
     Route: 048
  2. SEROQUEL [Suspect]
     Route: 048
     Dates: start: 20100101
  3. CARBAMAZEPINE [Concomitant]
  4. TEMAZEPAM [Concomitant]
  5. STRATTERA [Concomitant]
  6. STATIN [Concomitant]
     Indication: BLOOD CHOLESTEROL INCREASED
  7. AMYLODIPINE [Concomitant]
     Indication: HYPERTENSION
  8. OXYCONTIN [Concomitant]

REACTIONS (3)
  - BALANCE DISORDER [None]
  - DYSARTHRIA [None]
  - HYPERSOMNIA [None]
